FAERS Safety Report 16137921 (Version 2)
Quarter: 2019Q2

REPORT INFORMATION
  Report Type: Spontaneous
  Country: US (occurrence: US)
  Receive Date: 20190330
  Receipt Date: 20190417
  Transmission Date: 20190711
  Serious: Yes (Other)
  Sender: FDA-Public Use
  Company Number: US-AUROBINDO-AUR-APL-2019-017423

PATIENT

DRUGS (4)
  1. METRONIDAZOLE. [Concomitant]
     Active Substance: METRONIDAZOLE
     Indication: PRODUCT USED FOR UNKNOWN INDICATION
     Dosage: 500 MILLIGRAM, 4 TIMES A DAY
     Route: 048
     Dates: start: 201903
  2. CIPROFLOXACIN TABLETS USP 500 MG [Suspect]
     Active Substance: CIPROFLOXACIN
     Indication: APPENDICITIS
     Dosage: 500 MILLIGRAM, TWO TIMES A DAY
     Route: 048
     Dates: start: 201903
  3. CIPROFLOXACIN TABLETS USP 500 MG [Suspect]
     Active Substance: CIPROFLOXACIN
     Indication: ABDOMINAL PAIN UPPER
  4. CIPROFLOXACIN TABLETS USP 500 MG [Suspect]
     Active Substance: CIPROFLOXACIN
     Indication: DIARRHOEA

REACTIONS (8)
  - Chest pain [Unknown]
  - Limb discomfort [Unknown]
  - Dyspepsia [Unknown]
  - Dizziness [Unknown]
  - Chromaturia [Unknown]
  - Haematochezia [Unknown]
  - Insomnia [Unknown]
  - Tremor [Unknown]
